FAERS Safety Report 18271558 (Version 2)
Quarter: 2020Q3

REPORT INFORMATION
  Report Type: Spontaneous
  Country: US (occurrence: US)
  Receive Date: 20200916
  Receipt Date: 20200928
  Transmission Date: 20201103
  Serious: Yes (Hospitalization)
  Sender: FDA-Public Use
  Company Number: US-ROCHE-2678340

PATIENT
  Age: 61 Year
  Sex: Female

DRUGS (1)
  1. OCREVUS [Suspect]
     Active Substance: OCRELIZUMAB
     Indication: RELAPSING-REMITTING MULTIPLE SCLEROSIS
     Dosage: 28/JUL/2020
     Route: 042
     Dates: start: 20200713

REACTIONS (2)
  - Meningitis cryptococcal [Recovering/Resolving]
  - COVID-19 pneumonia [Unknown]

NARRATIVE: CASE EVENT DATE: 20200731
